FAERS Safety Report 24678212 (Version 1)
Quarter: 2024Q4

REPORT INFORMATION
  Report Type: Spontaneous
  Country: JP (occurrence: JP)
  Receive Date: 20241129
  Receipt Date: 20241129
  Transmission Date: 20250115
  Serious: Yes (Other)
  Sender: TAKEDA
  Company Number: JP-TAKEDA-2024TJP016920

PATIENT
  Sex: Female

DRUGS (4)
  1. ENTYVIO [Suspect]
     Active Substance: VEDOLIZUMAB
     Indication: Colitis ulcerative
     Dosage: UNK
  2. PREDONINE [Concomitant]
     Active Substance: PREDNISOLONE
     Dosage: 30 MILLIGRAM
  3. PREDONINE [Concomitant]
     Active Substance: PREDNISOLONE
     Dosage: 10 MILLIGRAM
  4. MERCAPTOPURINE [Concomitant]
     Active Substance: MERCAPTOPURINE
     Dosage: UNK

REACTIONS (2)
  - Pyrexia [Unknown]
  - C-reactive protein increased [Unknown]

NARRATIVE: CASE EVENT DATE: 20241114
